FAERS Safety Report 19718152 (Version 1)
Quarter: 2021Q3

REPORT INFORMATION
  Report Type: Spontaneous
  Country: US (occurrence: US)
  Receive Date: 20210818
  Receipt Date: 20210818
  Transmission Date: 20211014
  Serious: No
  Sender: FDA-Public Use
  Company Number: US-ASTRAZENECA-2021A637917

PATIENT
  Age: 27103 Day
  Sex: Male
  Weight: 76.2 kg

DRUGS (2)
  1. SYMBICORT [Suspect]
     Active Substance: BUDESONIDE\FORMOTEROL FUMARATE DIHYDRATE
     Indication: ASTHMA
     Route: 055
  2. BREZTRI AEROSPHERE [Suspect]
     Active Substance: BUDESONIDE\FORMOTEROL\GLYCOPYRRONIUM
     Indication: ASTHMA
     Dosage: 160 MCG/9 MCG/4.8 MCG, 2 INHALATIONS TWICE A DAY
     Route: 055
     Dates: start: 20210716

REACTIONS (4)
  - Product use issue [Unknown]
  - Off label use [Unknown]
  - Device malfunction [Unknown]
  - Hypertension [Unknown]

NARRATIVE: CASE EVENT DATE: 20210716
